FAERS Safety Report 14473990 (Version 2)
Quarter: 2018Q1

REPORT INFORMATION
  Report Type: Report from Study
  Country: PE (occurrence: PE)
  Receive Date: 20180201
  Receipt Date: 20180330
  Transmission Date: 20180509
  Serious: Yes (Death, Hospitalization)
  Sender: FDA-Public Use
  Company Number: PHHY2017PE161190

PATIENT
  Age: 49 Year
  Sex: Female

DRUGS (2)
  1. TASIGNA [Suspect]
     Active Substance: NILOTINIB
     Indication: CHRONIC MYELOID LEUKAEMIA
     Dosage: 800 MG, BID
     Route: 048
     Dates: start: 20170718, end: 20171104
  2. TASIGNA [Suspect]
     Active Substance: NILOTINIB
     Dosage: 200 MG, QID (TWICE A DAY (2 CAPSULES IN THE MORNING AND 2 IN THE AFTERNOON)
     Route: 048
     Dates: start: 20171030

REACTIONS (9)
  - Death [Fatal]
  - Paraplegia [Not Recovered/Not Resolved]
  - Sciatica [Unknown]
  - Malaise [Unknown]
  - General physical health deterioration [Unknown]
  - Pain in extremity [Unknown]
  - Neoplasm malignant [Not Recovered/Not Resolved]
  - Gait disturbance [Unknown]
  - Second primary malignancy [Not Recovered/Not Resolved]

NARRATIVE: CASE EVENT DATE: 20170902
